FAERS Safety Report 8024449-3 (Version None)
Quarter: 2012Q1

REPORT INFORMATION
  Report Type: 
  Country: None (occurrence: None)
  Receive Date: 20120105
  Receipt Date: 20111229
  Transmission Date: 20120608
  Serious: Yes (Hospitalization)
  Sender: FDA-Public Use
  Company Number: FR-NOVOPROD-342255

PATIENT

DRUGS (6)
  1. VICTOZA [Suspect]
     Indication: TYPE 2 DIABETES MELLITUS
     Dosage: 0.6 MG, QD
     Route: 058
     Dates: start: 20110922
  2. VICTOZA [Suspect]
     Dosage: 1.2 MG, QD
     Route: 058
     Dates: end: 20111001
  3. VICTOZA [Suspect]
     Dosage: 1.2 MG, QD
     Route: 058
  4. VICTOZA [Suspect]
     Dosage: 0.6 MG, QD
     Route: 058
  5. RAMIPRIL [Concomitant]
  6. DIAMICRON [Concomitant]

REACTIONS (3)
  - TACHYCARDIA [None]
  - HYPOGLYCAEMIA [None]
  - FLATULENCE [None]
